FAERS Safety Report 13660423 (Version 1)
Quarter: 2017Q2

REPORT INFORMATION
  Report Type: Spontaneous
  Country: US (occurrence: US)
  Receive Date: 20170616
  Receipt Date: 20170616
  Transmission Date: 20170830
  Serious: No
  Sender: FDA-Public Use
  Company Number: US-BAYER-2017-115416

PATIENT
  Sex: Female

DRUGS (1)
  1. MAGNEVIST [Suspect]
     Active Substance: GADOPENTETATE DIMEGLUMINE
     Indication: PRODUCT USED FOR UNKNOWN INDICATION
     Dosage: UNK UNK, ONCE
     Route: 065
     Dates: start: 20170614, end: 20170614

REACTIONS (7)
  - Vomiting [None]
  - Nausea [None]
  - Rhinorrhoea [None]
  - Urticaria [None]
  - Chest discomfort [None]
  - Cough [None]
  - Nasal congestion [None]

NARRATIVE: CASE EVENT DATE: 20170614
